FAERS Safety Report 23162571 (Version 5)
Quarter: 2024Q1

REPORT INFORMATION
  Report Type: Spontaneous
  Country: DE (occurrence: DE)
  Receive Date: 20231109
  Receipt Date: 20240314
  Transmission Date: 20240410
  Serious: Yes (Other)
  Sender: FDA-Public Use
  Company Number: DE-ROCHE-3421337

PATIENT
  Age: 60 Year
  Sex: Female
  Weight: 50.4 kg

DRUGS (32)
  1. DOCETAXEL [Suspect]
     Active Substance: DOCETAXEL\DOCETAXEL ANHYDROUS
     Indication: Breast cancer
     Dosage: 116 MILLIGRAM (LAST DOSE PRIOR EVENT: 116 MG)
     Route: 065
     Dates: start: 20230817, end: 20230817
  2. DOCETAXEL [Suspect]
     Active Substance: DOCETAXEL\DOCETAXEL ANHYDROUS
     Dosage: 118 MILLIGRAM, ON 07/SEP/2023, SHE RECEIVED MOST RECENT DOSE OF DOCETAXEL
     Route: 065
     Dates: start: 20230928
  3. CARBOPLATIN [Suspect]
     Active Substance: CARBOPLATIN
     Indication: Breast cancer
     Dosage: 640 MILLIGRAM (ON 28/SEP/2023, SHE RECEIVED MOST RECENT DOSE OF CARBOPLATIN 640 MG)
     Route: 065
     Dates: start: 20230817, end: 20230817
  4. CARBOPLATIN [Suspect]
     Active Substance: CARBOPLATIN
     Dosage: 690 MILLIGRAM
     Route: 065
     Dates: start: 20230907
  5. CARBOPLATIN [Suspect]
     Active Substance: CARBOPLATIN
     Dosage: 638 MILLIGRAM
     Route: 065
     Dates: start: 20230817
  6. PERJETA [Suspect]
     Active Substance: PERTUZUMAB
     Indication: Breast cancer
     Dosage: 840 MILLIGRAM (LAST DOSE PRIOR TO EVENT :840MG)
     Route: 065
     Dates: start: 20230817
  7. PERJETA [Suspect]
     Active Substance: PERTUZUMAB
     Dosage: 420 MILLIGRAM (ON 19/OCT/2023 AND 09/NOV/2023, SHE RECEIVED LAST DOSE PRIOR EVENT: 420 MG)
     Route: 065
     Dates: start: 20230907
  8. PERJETA [Suspect]
     Active Substance: PERTUZUMAB
     Dosage: 420 MILLIGRAM (ON 07/SEP/2023, SHE RECEIVED MOST RECENT DOSE OF PERTUZUMAB 420 MG)
     Route: 065
     Dates: start: 20230928
  9. TRASTUZUMAB [Suspect]
     Active Substance: TRASTUZUMAB
     Indication: Breast cancer
     Dosage: 399 MILLIGRAM (LAST DOSE PRIOR TO EVENT 399MG)
     Route: 065
     Dates: start: 20230817, end: 20230817
  10. TRASTUZUMAB [Suspect]
     Active Substance: TRASTUZUMAB
     Dosage: 315 MILLIGRAM (ON 28/SEP/2023, SHE RECEIVED MOST RECENT DOSE OF TRASTUZMAB 315 MG)
     Route: 065
     Dates: start: 20230928
  11. AKYNZEO [Concomitant]
     Indication: Product used for unknown indication
     Dosage: 300 MILLIGRAM
     Route: 065
     Dates: start: 20230817, end: 20231130
  12. DIMETHINDENE MALEATE [Concomitant]
     Active Substance: DIMETHINDENE MALEATE
     Indication: Product used for unknown indication
     Dosage: 4 MILLIGRAM
     Route: 065
     Dates: start: 20230817, end: 20231130
  13. ENOXAPARIN SODIUM [Concomitant]
     Active Substance: ENOXAPARIN SODIUM
     Indication: Product used for unknown indication
     Dosage: UNK , ONCE A DAY
     Route: 065
     Dates: start: 20230817, end: 20230826
  14. DEXAMETHASONE [Concomitant]
     Active Substance: DEXAMETHASONE
     Indication: Product used for unknown indication
     Dosage: 8 MILLIGRAM
     Route: 065
     Dates: start: 20230817, end: 20231130
  15. DEXAMETHASONE [Concomitant]
     Active Substance: DEXAMETHASONE
     Dosage: UNK
     Route: 065
     Dates: start: 20230818, end: 20231201
  16. DEXAMETHASONE [Concomitant]
     Active Substance: DEXAMETHASONE
     Dosage: 8 MILLIGRAM
     Route: 065
     Dates: start: 20230819, end: 20231202
  17. DEXAMETHASONE [Concomitant]
     Active Substance: DEXAMETHASONE
     Dosage: 16 MILLIGRAM
     Route: 065
     Dates: start: 20230906, end: 20231126
  18. DEXAMETHASONE [Concomitant]
     Active Substance: DEXAMETHASONE
     Dosage: 8 MILLIGRAM
     Route: 065
     Dates: start: 20230817, end: 20231130
  19. LOPERAMIDE [Concomitant]
     Active Substance: LOPERAMIDE
     Indication: Product used for unknown indication
     Dosage: 2 MILLIGRAM
     Route: 065
     Dates: start: 20230821, end: 20230827
  20. LOPERAMIDE [Concomitant]
     Active Substance: LOPERAMIDE
     Dosage: 4 MILLIGRAM
     Route: 065
     Dates: start: 20230910, end: 20230929
  21. LOPERAMIDE [Concomitant]
     Active Substance: LOPERAMIDE
     Dosage: 4 MILLIGRAM
     Route: 065
     Dates: start: 20231001
  22. NEULASTA [Concomitant]
     Active Substance: PEGFILGRASTIM
     Indication: Product used for unknown indication
     Dosage: 6 MILLIGRAM
     Route: 065
     Dates: start: 20230818, end: 20231201
  23. NEULASTA [Concomitant]
     Active Substance: PEGFILGRASTIM
     Dosage: 6 MILLIGRAM
     Route: 065
     Dates: start: 20230818, end: 20230929
  24. NEULASTA [Concomitant]
     Active Substance: PEGFILGRASTIM
     Dosage: 6 MILLIGRAM
     Route: 065
     Dates: start: 20231020, end: 20231120
  25. VITAMIN D3 [Concomitant]
     Active Substance: CHOLECALCIFEROL
     Indication: Product used for unknown indication
     Dosage: 2850 IU INTERNATIONAL UNIT(S), EVERY WEEK
     Route: 065
     Dates: start: 20230908, end: 20240205
  26. VITAMIN D3 [Concomitant]
     Active Substance: CHOLECALCIFEROL
     Dosage: 1420 INTERNATIONAL UNIT, ONCE A DAY
     Route: 065
     Dates: start: 20240206
  27. Hysan [Concomitant]
     Indication: Product used for unknown indication
     Dosage: UNK (DOSE: 1 HUB, 0.33 DAY)
     Route: 065
     Dates: start: 20230908
  28. Bepanthen [Concomitant]
     Indication: Product used for unknown indication
     Dosage: UNK, ONCE A DAY (DOSE: 1 CM)
     Route: 065
     Dates: start: 20230908, end: 20240205
  29. MCP [Concomitant]
     Active Substance: METOCLOPRAMIDE HYDROCHLORIDE
     Indication: Product used for unknown indication
     Dosage: 10 MILLIGRAM, ONCE A DAY
     Route: 065
     Dates: start: 20231007, end: 20231007
  30. MCP [Concomitant]
     Active Substance: METOCLOPRAMIDE HYDROCHLORIDE
     Dosage: 10 MILLIGRAM, ONCE A DAY
     Route: 065
     Dates: start: 20231116, end: 20231122
  31. ALLIUM CEPA [Concomitant]
     Active Substance: ONION
     Indication: Product used for unknown indication
     Dosage: UNK (5 GLOBULES, 0.33 DAY)
     Route: 065
     Dates: start: 20230908, end: 20231214
  32. Hametum [Concomitant]
     Indication: Product used for unknown indication
     Dosage: UNK, 0.5 DAY (0.5 CM)
     Route: 065
     Dates: start: 20231020

REACTIONS (19)
  - Polyneuropathy [Recovered/Resolved]
  - Nail discolouration [Not Recovered/Not Resolved]
  - Dysgeusia [Recovering/Resolving]
  - Alopecia [Recovered/Resolved]
  - Dry skin [Recovered/Resolved]
  - Rash [Recovered/Resolved]
  - Dyspepsia [Recovered/Resolved]
  - Asthenia [Recovered/Resolved]
  - Oedema peripheral [Recovered/Resolved]
  - Epistaxis [Recovered/Resolved]
  - Diarrhoea [Recovered/Resolved]
  - Decreased appetite [Recovered/Resolved]
  - Flushing [Recovered/Resolved]
  - Nausea [Recovered/Resolved]
  - Vomiting [Recovered/Resolved]
  - Anal haemorrhage [Recovered/Resolved]
  - Nail disorder [Not Recovered/Not Resolved]
  - Illness [Recovered/Resolved]
  - Pain in extremity [Recovered/Resolved]

NARRATIVE: CASE EVENT DATE: 20230818
